FAERS Safety Report 4462292-2 (Version None)
Quarter: 2004Q3

REPORT INFORMATION
  Report Type: 
  Country: None (occurrence: None)
  Receive Date: 20040924
  Receipt Date: 20040913
  Transmission Date: 20050211
  Serious: Yes (Other)
  Sender: FDA-Public Use
  Company Number: 2004066266

PATIENT

DRUGS (7)
  1. GEODON [Suspect]
     Indication: ILL-DEFINED DISORDER
     Dosage: 60 MG (1 IN 1 D), ORAL
     Route: 048
  2. ESCITALOPRAM (ESCITALOPRAM) [Concomitant]
  3. OXCARBAZEPINE (OXCARBAZEPINE) [Concomitant]
  4. QUETIAPINE FUMARATE (QUETIAPINE FUMARATE) [Concomitant]
  5. CLONAZEPAM [Concomitant]
  6. LEVOTHYROXINE SODIUM [Concomitant]
  7. ANTIHYPERTENSIVES (ANTIHYPERTENSIVES) [Concomitant]

REACTIONS (2)
  - HYPOKALAEMIA [None]
  - TORSADE DE POINTES [None]
